FAERS Safety Report 20119552 (Version 1)
Quarter: 2021Q4

REPORT INFORMATION
  Report Type: Spontaneous
  Country: FR (occurrence: FR)
  Receive Date: 20211126
  Receipt Date: 20211126
  Transmission Date: 20220304
  Serious: Yes (Disabling, Congenital Anomaly, Other)
  Sender: FDA-Public Use
  Company Number: FR-ABBVIE-21K-056-4174355-00

PATIENT
  Sex: Male

DRUGS (2)
  1. VALPROATE SODIUM [Suspect]
     Active Substance: VALPROATE SODIUM
     Indication: Maternal exposure timing unspecified
     Route: 064
  2. VALPROATE SODIUM [Suspect]
     Active Substance: VALPROATE SODIUM
     Indication: Maternal exposure timing unspecified
     Route: 064

REACTIONS (32)
  - Dysmorphism [Unknown]
  - Intervertebral disc disorder [Unknown]
  - Balance disorder [Unknown]
  - Bradyphrenia [Unknown]
  - Dysphemia [Not Recovered/Not Resolved]
  - Memory impairment [Unknown]
  - Psychomotor skills impaired [Unknown]
  - Speech disorder developmental [Unknown]
  - Behaviour disorder [Unknown]
  - Adjustment disorder [Unknown]
  - Educational problem [Unknown]
  - Phobia [Unknown]
  - Mixed anxiety and depressive disorder [Unknown]
  - Nasopharyngitis [Unknown]
  - Tonsillitis [Unknown]
  - Asthenia [Unknown]
  - Ear, nose and throat infection [Unknown]
  - Psychiatric symptom [Unknown]
  - Mobility decreased [Unknown]
  - Spondylolysis [Unknown]
  - Intervertebral disc protrusion [Unknown]
  - Neck pain [Unknown]
  - Muscle contracture [Unknown]
  - Personality disorder [Unknown]
  - Ear infection [Unknown]
  - Anxiety [Unknown]
  - Aggression [Unknown]
  - Bronchitis [Unknown]
  - Rhinitis [Unknown]
  - Enuresis [Unknown]
  - Disturbance in attention [Unknown]
  - Foetal exposure during pregnancy [Unknown]

NARRATIVE: CASE EVENT DATE: 20090401
